FAERS Safety Report 6011505-4 (Version None)
Quarter: 2008Q4

REPORT INFORMATION
  Report Type: 
  Country: None (occurrence: None)
  Receive Date: 20081218
  Receipt Date: 19861014
  Transmission Date: 20090506
  Serious: Yes (Death)
  Sender: FDA-Public Use
  Company Number: GB-ROCHE-7122

PATIENT
  Sex: Male
  Weight: 32 kg

DRUGS (3)
  1. GANCICLOVIR SODIUM [Suspect]
     Indication: CYTOMEGALOVIRUS INFECTION
     Dosage: FORM: INFUSION.
     Route: 042
     Dates: start: 19860808, end: 19860809
  2. FOSCARNET [Concomitant]
     Dates: start: 19860804, end: 19860809
  3. CYTOTECT [Concomitant]
     Dates: start: 19860804, end: 19860808

REACTIONS (1)
  - DEATH [None]
